FAERS Safety Report 21346464 (Version 3)
Quarter: 2022Q3

REPORT INFORMATION
  Report Type: Spontaneous
  Country: TH (occurrence: TH)
  Receive Date: 20220917
  Receipt Date: 20220927
  Transmission Date: 20221026
  Serious: Yes (Other)
  Sender: FDA-Public Use
  Company Number: TH-NOVARTISPH-NVSC2022TH207686

PATIENT
  Age: 73 Year
  Sex: Female

DRUGS (36)
  1. SACUBITRIL\VALSARTAN [Suspect]
     Active Substance: SACUBITRIL\VALSARTAN
     Indication: Cardiac failure
     Dosage: 0.5 DOSAGE FORM, BID (100 MG)
     Route: 065
     Dates: start: 20200831
  2. SACUBITRIL\VALSARTAN [Suspect]
     Active Substance: SACUBITRIL\VALSARTAN
     Dosage: 1.5 DOSAGE FORM, BID (100 MG)
     Route: 065
     Dates: start: 20201130
  3. NEBIVOLOL [Concomitant]
     Active Substance: NEBIVOLOL
     Indication: Product used for unknown indication
     Dosage: 1 DOSAGE FORM, QD
     Route: 065
  4. NEBIVOLOL [Concomitant]
     Active Substance: NEBIVOLOL
     Dosage: 1 DOSAGE FORM, BID
     Route: 065
     Dates: start: 20180607
  5. NEBIVOLOL [Concomitant]
     Active Substance: NEBIVOLOL
     Dosage: 1 DOSAGE FORM, QD
     Route: 065
     Dates: start: 20190813
  6. NEBIVOLOL [Concomitant]
     Active Substance: NEBIVOLOL
     Dosage: 1 DOSAGE FORM, QD
     Route: 065
     Dates: start: 20200324
  7. NEBIVOLOL [Concomitant]
     Active Substance: NEBIVOLOL
     Dosage: 1 DOSAGE FORM, QD
     Route: 065
     Dates: start: 20200831
  8. NEBIVOLOL [Concomitant]
     Active Substance: NEBIVOLOL
     Dosage: 0.25 DOSAGE FORM, QD
     Route: 065
     Dates: start: 20201130
  9. NEBIVOLOL [Concomitant]
     Active Substance: NEBIVOLOL
     Dosage: 0.25 DOSAGE FORM
     Route: 065
     Dates: start: 20210315
  10. NEBIVOLOL [Concomitant]
     Active Substance: NEBIVOLOL
     Dosage: 0.25 DOSAGE FORM, QD
     Route: 065
     Dates: start: 20210607
  11. NEBIVOLOL [Concomitant]
     Active Substance: NEBIVOLOL
     Dosage: 0.25 DOSAGE FORM, QD
     Route: 065
     Dates: start: 20220522
  12. SPIRONOLACTONE [Concomitant]
     Active Substance: SPIRONOLACTONE
     Indication: Product used for unknown indication
     Dosage: 25 MG
     Route: 065
  13. SPIRONOLACTONE [Concomitant]
     Active Substance: SPIRONOLACTONE
     Dosage: 25 MG
     Route: 065
     Dates: start: 20180607
  14. SPIRONOLACTONE [Concomitant]
     Active Substance: SPIRONOLACTONE
     Dosage: 25 MG
     Route: 065
     Dates: start: 20190813
  15. SPIRONOLACTONE [Concomitant]
     Active Substance: SPIRONOLACTONE
     Dosage: 25 MG
     Route: 065
     Dates: start: 20200324
  16. SPIRONOLACTONE [Concomitant]
     Active Substance: SPIRONOLACTONE
     Dosage: 25 MG
     Route: 065
     Dates: start: 20200831
  17. SPIRONOLACTONE [Concomitant]
     Active Substance: SPIRONOLACTONE
     Dosage: 25 MG
     Route: 065
     Dates: start: 20201130
  18. SPIRONOLACTONE [Concomitant]
     Active Substance: SPIRONOLACTONE
     Dosage: 25 MG
     Route: 065
     Dates: start: 20210315
  19. SPIRONOLACTONE [Concomitant]
     Active Substance: SPIRONOLACTONE
     Dosage: 25 MG
     Route: 065
     Dates: start: 20210607
  20. SPIRONOLACTONE [Concomitant]
     Active Substance: SPIRONOLACTONE
     Dosage: 25 MG
     Route: 065
     Dates: start: 20220522
  21. FUROSEMIDE [Concomitant]
     Active Substance: FUROSEMIDE
     Indication: Product used for unknown indication
     Dosage: 20 MG
     Route: 065
  22. FUROSEMIDE [Concomitant]
     Active Substance: FUROSEMIDE
     Dosage: UNK
     Route: 065
     Dates: start: 20180607
  23. FUROSEMIDE [Concomitant]
     Active Substance: FUROSEMIDE
     Dosage: 20 MG
     Route: 065
     Dates: start: 20190813
  24. FUROSEMIDE [Concomitant]
     Active Substance: FUROSEMIDE
     Dosage: 20 MG
     Route: 065
     Dates: start: 20200324
  25. FUROSEMIDE [Concomitant]
     Active Substance: FUROSEMIDE
     Dosage: 20 MG
     Route: 065
     Dates: start: 20200831
  26. FUROSEMIDE [Concomitant]
     Active Substance: FUROSEMIDE
     Dosage: 20 MG
     Route: 065
     Dates: start: 20201130
  27. FUROSEMIDE [Concomitant]
     Active Substance: FUROSEMIDE
     Dosage: 20 MG
     Route: 065
     Dates: start: 20210315
  28. FUROSEMIDE [Concomitant]
     Active Substance: FUROSEMIDE
     Dosage: 20 MG
     Route: 065
     Dates: start: 20210607
  29. FUROSEMIDE [Concomitant]
     Active Substance: FUROSEMIDE
     Dosage: 20 MG
     Route: 065
     Dates: start: 20220522
  30. FUROSEMIDE [Concomitant]
     Active Substance: FUROSEMIDE
     Dosage: 0.5 DOSAGE FORM, QD
     Route: 065
  31. DAPAGLIFLOZIN [Concomitant]
     Active Substance: DAPAGLIFLOZIN
     Indication: Product used for unknown indication
     Dosage: UNK (5)
     Route: 065
     Dates: start: 20190813
  32. DAPAGLIFLOZIN [Concomitant]
     Active Substance: DAPAGLIFLOZIN
     Dosage: UNK (5)
     Route: 065
     Dates: start: 20200831
  33. DAPAGLIFLOZIN [Concomitant]
     Active Substance: DAPAGLIFLOZIN
     Dosage: UNK (5)
     Route: 065
     Dates: start: 20201130
  34. DAPAGLIFLOZIN [Concomitant]
     Active Substance: DAPAGLIFLOZIN
     Dosage: UNK (5)
     Route: 065
     Dates: start: 20210315
  35. DAPAGLIFLOZIN [Concomitant]
     Active Substance: DAPAGLIFLOZIN
     Dosage: UNK (5)
     Route: 065
     Dates: start: 20210607
  36. DAPAGLIFLOZIN [Concomitant]
     Active Substance: DAPAGLIFLOZIN
     Dosage: UNK (5)
     Route: 065
     Dates: start: 20220522

REACTIONS (8)
  - Glycosylated haemoglobin increased [Unknown]
  - Hypoglycaemia [Unknown]
  - Blood creatinine increased [Unknown]
  - Heart rate decreased [Unknown]
  - Hypertension [Unknown]
  - Hypotension [Unknown]
  - Blood glucose increased [Unknown]
  - Wrong technique in product usage process [Unknown]

NARRATIVE: CASE EVENT DATE: 20201130
